FAERS Safety Report 4315942-5 (Version None)
Quarter: 2004Q1

REPORT INFORMATION
  Report Type: 
  Country: None (occurrence: None)
  Receive Date: 20040311
  Receipt Date: 20040311
  Transmission Date: 20041129
  Serious: No
  Sender: FDA-Public Use
  Company Number: None

PATIENT
  Age: 18 Year
  Sex: Male
  Weight: 64.6376 kg

DRUGS (2)
  1. ESKALITH [Suspect]
     Indication: BIPOLAR DISORDER
     Dosage: 1 Q AM AND 1 1/2 QHS
     Dates: start: 19990501
  2. RISPERDAL [Concomitant]

REACTIONS (1)
  - DRUG EFFECT DECREASED [None]
